FAERS Safety Report 11269977 (Version 2)
Quarter: 2016Q3

REPORT INFORMATION
  Report Type: Spontaneous
  Country: GB (occurrence: GB)
  Receive Date: 20150714
  Receipt Date: 20160729
  Transmission Date: 20161109
  Serious: Yes (Other)
  Sender: FDA-Public Use
  Company Number: GB-PFIZER INC-2015226812

PATIENT
  Age: 56 Year
  Sex: Male

DRUGS (6)
  1. LYRICA [Suspect]
     Active Substance: PREGABALIN
     Indication: HEADACHE
     Dosage: 75 MG, UNK
  2. VENLAFAXINE [Concomitant]
     Active Substance: VENLAFAXINE HYDROCHLORIDE
     Dosage: 75 MG, 1X/DAY
  3. LYRICA [Suspect]
     Active Substance: PREGABALIN
     Dosage: 600 MG, UNK
     Dates: end: 201501
  4. VENLAFAXINE [Concomitant]
     Active Substance: VENLAFAXINE HYDROCHLORIDE
     Dosage: 75 MG, 2X/DAY
  5. LYRICA [Suspect]
     Active Substance: PREGABALIN
     Dosage: TITRATED UP TO 600 MG
  6. PREGABALIN. [Suspect]
     Active Substance: PREGABALIN
     Dosage: UNK
     Dates: start: 20141030, end: 20150101

REACTIONS (16)
  - Drug ineffective for unapproved indication [Unknown]
  - Panic attack [Unknown]
  - Muscle twitching [Recovering/Resolving]
  - Suicidal ideation [Unknown]
  - Anxiety [Unknown]
  - Paraesthesia [Recovered/Resolved]
  - Cardiac disorder [Unknown]
  - Condition aggravated [Unknown]
  - Tremor [Unknown]
  - Withdrawal syndrome [Unknown]
  - Impaired work ability [Unknown]
  - Fear [Unknown]
  - Urinary retention [Unknown]
  - Depression [Unknown]
  - Insomnia [Not Recovered/Not Resolved]
  - Urinary hesitation [Unknown]
